FAERS Safety Report 25090758 (Version 1)
Quarter: 2025Q1

REPORT INFORMATION
  Report Type: Other
  Country: CN (occurrence: None)
  Receive Date: 20250318
  Receipt Date: 20250318
  Transmission Date: 20250408
  Serious: Yes (Life-Threatening, Hospitalization)
  Sender: INCYTE
  Company Number: CN-002147023-NVSC2025CN043506

PATIENT
  Age: 16 Year

DRUGS (1)
  1. RUXOLITINIB [Suspect]
     Active Substance: RUXOLITINIB
     Indication: Myelofibrosis
     Dosage: 2.5 MG, BID

REACTIONS (1)
  - Myelosuppression [Recovering/Resolving]
